FAERS Safety Report 8717253 (Version 2)
Quarter: 2012Q4

REPORT INFORMATION
  Report Type: 
  Country: US (occurrence: None)
  Receive Date: 20120726
  Receipt Date: 20120820
  Transmission Date: 20130627
  Serious: Yes (Hospitalization)
  Sender: FDA-Public Use
  Company Number: UTC-021093

PATIENT
  Age: 80 Year
  Sex: Female

DRUGS (3)
  1. TYVASO [Suspect]
     Indication: CHRONIC PULMONARY HEART DISEASE
     Dosage: 108 MCG (18 MCG,1 IN 4 HR),INHALATION
     Route: 055
     Dates: start: 20120602
  2. ADCIRCA [Concomitant]
  3. LETAIRIS [Concomitant]

REACTIONS (1)
  - Pneumonia [None]
